FAERS Safety Report 8810772 (Version 1)
Quarter: 2012Q4

REPORT INFORMATION
  Report Type: 
  Country: US (occurrence: US)
  Receive Date: 20120927
  Receipt Date: 20120927
  Transmission Date: 20130627
  Serious: No
  Sender: FDA-Public Use
  Company Number: US-PFIZER INC-2012239086

PATIENT
  Age: 34 Year
  Sex: Male
  Weight: 125 kg

DRUGS (4)
  1. LYRICA [Suspect]
     Indication: KNEE OPERATION
     Dosage: 150 mg, 3x/day
     Dates: start: 2009, end: 20120831
  2. METHADONE [Concomitant]
     Indication: FIBROMYALGIA
     Dosage: 30 mg, 3x/day
  3. METHADONE [Concomitant]
     Indication: ARTHRITIS
  4. METHADONE [Concomitant]
     Indication: PAIN

REACTIONS (4)
  - Diarrhoea [Unknown]
  - Discomfort [Unknown]
  - Pain in extremity [Unknown]
  - Off label use [Unknown]
